FAERS Safety Report 13618283 (Version 1)
Quarter: 2017Q2

REPORT INFORMATION
  Report Type: Spontaneous
  Country: US (occurrence: US)
  Receive Date: 20170606
  Receipt Date: 20170606
  Transmission Date: 20170830
  Serious: Yes (Death, Hospitalization, Other)
  Sender: FDA-Public Use
  Company Number: US-MYLANLABS-2017M1030805

PATIENT

DRUGS (1)
  1. ITRACONAZOLE. [Suspect]
     Active Substance: ITRACONAZOLE
     Indication: BLASTOMYCOSIS
     Route: 065

REACTIONS (2)
  - Cardiac failure congestive [Recovered/Resolved]
  - Cardiac arrest [Fatal]
